FAERS Safety Report 23668184 (Version 1)
Quarter: 2024Q1

REPORT INFORMATION
  Report Type: Other
  Country: US (occurrence: None)
  Receive Date: 20240325
  Receipt Date: 20240325
  Transmission Date: 20240410
  Serious: Yes (Other)
  Sender: FDA-Public Use
  Company Number: US-ROCHE-3528604

PATIENT

DRUGS (4)
  1. RITUXIMAB [Suspect]
     Active Substance: RITUXIMAB
     Indication: Prophylaxis against transplant rejection
     Route: 042
  2. MYCOPHENOLATE MOFETIL [Suspect]
     Active Substance: MYCOPHENOLATE MOFETIL
     Indication: Prophylaxis against transplant rejection
     Route: 048
  3. TACROLIMUS [Suspect]
     Active Substance: TACROLIMUS
     Indication: Prophylaxis against transplant rejection
     Dosage: 6-10 NG/ML
     Route: 048
  4. SIROLIMUS [Suspect]
     Active Substance: SIROLIMUS
     Indication: Prophylaxis against transplant rejection
     Dosage: 8-12 NG/ML.
     Route: 048

REACTIONS (12)
  - Cerebrovascular accident [Unknown]
  - Respiratory failure [Unknown]
  - Transplant rejection [Unknown]
  - Deep vein thrombosis [Unknown]
  - Incisional hernia [Unknown]
  - Seroma [Unknown]
  - Pyelonephritis [Unknown]
  - Nephrolithiasis [Unknown]
  - Abdominal hernia [Unknown]
  - Renal injury [Unknown]
  - Leukopenia [Unknown]
  - Lymphocyte count decreased [Unknown]
